FAERS Safety Report 9449264 (Version 1)
Quarter: 2013Q3

REPORT INFORMATION
  Report Type: Spontaneous
  Country: FR (occurrence: FR)
  Receive Date: 20130808
  Receipt Date: 20130808
  Transmission Date: 20140515
  Serious: Yes (Other)
  Sender: FDA-Public Use
  Company Number: FR-GLAXOSMITHKLINE-B0913622A

PATIENT
  Age: 55 Year
  Sex: Female

DRUGS (31)
  1. ZOPHREN [Suspect]
     Indication: PRODUCT USED FOR UNKNOWN INDICATION
     Dosage: 24MG CYCLIC
     Route: 042
     Dates: start: 20130628, end: 20130714
  2. KIDROLASE [Suspect]
     Indication: PRODUCT USED FOR UNKNOWN INDICATION
     Dosage: 10600IU CYCLIC
     Route: 042
     Dates: start: 20130705, end: 20130723
  3. NUTRIFLEX [Suspect]
     Indication: PRODUCT USED FOR UNKNOWN INDICATION
     Dosage: 1875ML PER DAY
     Route: 042
     Dates: start: 20130717, end: 20130724
  4. METHYLPREDNISOLONE [Suspect]
     Indication: PRODUCT USED FOR UNKNOWN INDICATION
     Dosage: 30MG TWICE PER DAY
     Route: 042
     Dates: start: 20130621, end: 20130628
  5. UROMITEXAN [Suspect]
     Indication: PRODUCT USED FOR UNKNOWN INDICATION
     Dosage: 400MG CYCLIC
     Route: 042
     Dates: start: 20130628, end: 20130712
  6. VINCRISTINE SULPHATE [Suspect]
     Indication: PRODUCT USED FOR UNKNOWN INDICATION
     Dosage: 2MG CYCLIC
     Route: 042
     Dates: start: 20130628, end: 20130719
  7. ENDOXAN [Suspect]
     Indication: PRODUCT USED FOR UNKNOWN INDICATION
     Dosage: 1300MG CYCLIC
     Route: 042
     Dates: start: 20130628, end: 20130712
  8. ANTITHROMBIN III [Suspect]
     Indication: PRODUCT USED FOR UNKNOWN INDICATION
     Dosage: 3000IU PER DAY
     Route: 042
     Dates: start: 20130705, end: 20130723
  9. CERUBIDINE [Suspect]
     Indication: PRODUCT USED FOR UNKNOWN INDICATION
     Dosage: 50MG CYCLIC
     Route: 042
     Dates: start: 20130628, end: 20130713
  10. LEXOMIL [Suspect]
     Indication: PRODUCT USED FOR UNKNOWN INDICATION
     Route: 048
     Dates: start: 20130621, end: 20130719
  11. GENTAMYCIN [Suspect]
     Indication: PRODUCT USED FOR UNKNOWN INDICATION
     Route: 042
     Dates: start: 20130712, end: 20130714
  12. VANCOMYCIN [Suspect]
     Indication: PRODUCT USED FOR UNKNOWN INDICATION
     Dosage: 2G PER DAY
     Route: 042
     Dates: start: 20130718, end: 20130722
  13. PIPERACILLIN + TAZOBACTAM [Suspect]
     Indication: PRODUCT USED FOR UNKNOWN INDICATION
     Dosage: 4G THREE TIMES PER DAY
     Route: 042
     Dates: start: 20130712, end: 20130722
  14. TRANXENE [Suspect]
     Indication: PRODUCT USED FOR UNKNOWN INDICATION
     Dosage: 20MG PER DAY
     Route: 042
     Dates: start: 20130621, end: 20130707
  15. ZOPICLONE [Suspect]
     Indication: PRODUCT USED FOR UNKNOWN INDICATION
     Dosage: 3.75MG PER DAY
     Route: 048
     Dates: start: 20130723, end: 20130725
  16. RASBURICASE [Suspect]
     Indication: PRODUCT USED FOR UNKNOWN INDICATION
     Dosage: 15MG PER DAY
     Route: 042
     Dates: start: 20130621, end: 20130627
  17. ZYLORIC [Suspect]
     Indication: PRODUCT USED FOR UNKNOWN INDICATION
     Dosage: 300MG PER DAY
     Route: 048
     Dates: start: 20130627, end: 20130701
  18. DUPHALAC [Suspect]
     Indication: PRODUCT USED FOR UNKNOWN INDICATION
     Dosage: 1SAC PER DAY
     Route: 048
     Dates: start: 20130629, end: 20130629
  19. MOVICOL [Suspect]
     Indication: PRODUCT USED FOR UNKNOWN INDICATION
     Dosage: 1SAC PER DAY
     Route: 048
     Dates: start: 20130701, end: 20130701
  20. FUROSEMIDE [Suspect]
     Indication: PRODUCT USED FOR UNKNOWN INDICATION
     Route: 042
     Dates: start: 20130701, end: 20130719
  21. PARACETAMOL [Suspect]
     Indication: PRODUCT USED FOR UNKNOWN INDICATION
     Dosage: 1G PER DAY
     Route: 042
     Dates: start: 20130712, end: 20130717
  22. GAVISCON [Suspect]
     Indication: PRODUCT USED FOR UNKNOWN INDICATION
     Dosage: 1SAC PER DAY
     Route: 048
     Dates: start: 20130712, end: 20130712
  23. GRANOCYTE [Suspect]
     Indication: PRODUCT USED FOR UNKNOWN INDICATION
     Dosage: 34IU6 PER DAY
     Route: 058
     Dates: start: 20130717, end: 20130723
  24. VALACYCLOVIR [Suspect]
     Indication: PRODUCT USED FOR UNKNOWN INDICATION
     Dosage: 500MG PER DAY
     Route: 048
     Dates: start: 20130621, end: 20130624
  25. SODIUM HEPARIN [Suspect]
     Indication: PRODUCT USED FOR UNKNOWN INDICATION
     Dosage: 3000IU TWICE PER DAY
     Route: 058
     Dates: start: 20130621, end: 20130725
  26. INEXIUM [Suspect]
     Indication: PRODUCT USED FOR UNKNOWN INDICATION
     Dosage: 15MG PER DAY
     Route: 048
     Dates: start: 20130621, end: 20130624
  27. ACUPAN [Suspect]
     Indication: PRODUCT USED FOR UNKNOWN INDICATION
     Dosage: 1INJ PER DAY
     Route: 042
     Dates: start: 20130621, end: 20130725
  28. LEDERFOLINE [Suspect]
     Indication: PRODUCT USED FOR UNKNOWN INDICATION
     Dosage: 25MG PER DAY
     Route: 048
     Dates: start: 20130621, end: 20130725
  29. VENLAFAXINE [Suspect]
     Indication: PRODUCT USED FOR UNKNOWN INDICATION
     Dosage: 37.5MG PER DAY
     Route: 048
     Dates: start: 20130622, end: 20130725
  30. PRIMPERAN [Suspect]
     Indication: PRODUCT USED FOR UNKNOWN INDICATION
     Dosage: 30MG PER DAY
     Route: 042
     Dates: start: 20130711, end: 20130725
  31. BACTRIM FORTE [Suspect]
     Indication: PRODUCT USED FOR UNKNOWN INDICATION
     Dosage: 1TAB THREE TIMES PER DAY
     Route: 048
     Dates: start: 20130627

REACTIONS (1)
  - Hypertriglyceridaemia [Recovering/Resolving]
